FAERS Safety Report 7457558-8 (Version None)
Quarter: 2011Q2

REPORT INFORMATION
  Report Type: 
  Country: None (occurrence: None)
  Receive Date: 20110504
  Receipt Date: 20110420
  Transmission Date: 20111010
  Serious: Yes (Hospitalization)
  Sender: FDA-Public Use
  Company Number: CA-JNJFOC-20110410205

PATIENT
  Sex: Female
  Weight: 63.5 kg

DRUGS (6)
  1. IMURAN [Concomitant]
  2. PREVACID [Concomitant]
  3. REMICADE [Suspect]
     Indication: CROHN'S DISEASE
     Dosage: DAILY DOSE: EVERY 6-8 WEEKS
     Route: 042
  4. VALTREX [Concomitant]
  5. CHOLESTYRAMINE [Concomitant]
  6. ATACAND [Concomitant]

REACTIONS (1)
  - GALLBLADDER DISORDER [None]
